FAERS Safety Report 5684468-9 (Version None)
Quarter: 2008Q1

REPORT INFORMATION
  Report Type: 
  Country: None (occurrence: None)
  Receive Date: 20080327
  Receipt Date: 20080327
  Transmission Date: 20080703
  Serious: Yes (Disabling)
  Sender: FDA-Public Use
  Company Number: None

PATIENT
  Age: 73 Year
  Sex: Female
  Weight: 75.7507 kg

DRUGS (2)
  1. FLONASE [Suspect]
     Dosage: ONCE A DAY
  2. NASONEX [Suspect]
     Dosage: ONCE A DAY

REACTIONS (1)
  - VERTIGO [None]
